FAERS Safety Report 13097210 (Version 2)
Quarter: 2017Q2

REPORT INFORMATION
  Report Type: Spontaneous
  Country: FR (occurrence: FR)
  Receive Date: 20170109
  Receipt Date: 20170410
  Transmission Date: 20170830
  Serious: Yes (Hospitalization)
  Sender: FDA-Public Use
  Company Number: FR-ELI_LILLY_AND_COMPANY-FR201612010441

PATIENT
  Age: 49 Year
  Sex: Female
  Weight: 33 kg

DRUGS (1)
  1. GEMZAR [Suspect]
     Active Substance: GEMCITABINE HYDROCHLORIDE
     Indication: ADENOCARCINOMA PANCREAS
     Dosage: UNK, UNKNOWN
     Route: 042
     Dates: start: 20160526

REACTIONS (6)
  - Oedema peripheral [Not Recovered/Not Resolved]
  - Malnutrition [Recovered/Resolved]
  - Generalised oedema [Recovered/Resolved]
  - Ascites [Not Recovered/Not Resolved]
  - Hepatic steatosis [Unknown]
  - Pulmonary oedema [Not Recovered/Not Resolved]

NARRATIVE: CASE EVENT DATE: 201606
